FAERS Safety Report 7184016-0 (Version None)
Quarter: 2010Q4

REPORT INFORMATION
  Report Type: 
  Country: None (occurrence: None)
  Receive Date: 20101210
  Receipt Date: 20101130
  Transmission Date: 20110411
  Serious: Yes (Hospitalization)
  Sender: FDA-Public Use
  Company Number: 2010EU006053

PATIENT
  Age: 5 Year
  Sex: Male

DRUGS (3)
  1. TACROLIMUS [Suspect]
     Indication: DERMATITIS ATOPIC
     Dosage: 1 %, WEEKLY
     Dates: start: 20100101
  2. CORTICOSTEROIDS [Concomitant]
  3. FURAGIN (AKRITOIN) [Concomitant]

REACTIONS (1)
  - HYDRONEPHROSIS [None]
